FAERS Safety Report 5513557-4 (Version None)
Quarter: 2007Q4

REPORT INFORMATION
  Report Type: 
  Country: None (occurrence: None)
  Receive Date: 20071108
  Receipt Date: 20071031
  Transmission Date: 20080405
  Serious: Yes (Hospitalization, Other)
  Sender: FDA-Public Use
  Company Number: 2007AL004630

PATIENT
  Age: 52 Year

DRUGS (4)
  1. DIAZEPAM [Suspect]
     Indication: POISONING
  2. MIRTAZAPINE [Suspect]
     Indication: POISONING
  3. ZOPICLONE [Concomitant]
  4. ALCOHOL [Concomitant]

REACTIONS (3)
  - ALCOHOL USE [None]
  - DEPRESSED LEVEL OF CONSCIOUSNESS [None]
  - DRUG TOXICITY [None]
